FAERS Safety Report 15604579 (Version 2)
Quarter: 2018Q4

REPORT INFORMATION
  Report Type: Spontaneous
  Country: AT (occurrence: AT)
  Receive Date: 20181110
  Receipt Date: 20181121
  Transmission Date: 20190205
  Serious: Yes (Other)
  Sender: FDA-Public Use
  Company Number: PHHY2018AT134310

PATIENT
  Age: 48 Year
  Sex: Female

DRUGS (6)
  1. GEMCITABINE [Suspect]
     Active Substance: GEMCITABINE\GEMCITABINE HYDROCHLORIDE
     Indication: OVARIAN CANCER STAGE IV
     Dosage: UNK
     Route: 065
  2. TRABECTEDIN [Concomitant]
     Active Substance: TRABECTEDIN
     Indication: PRODUCT USED FOR UNKNOWN INDICATION
     Dosage: UNK
     Route: 065
  3. PEGYLATED LIPOSOMAL DOXORUBICIN [Concomitant]
     Active Substance: DOXORUBICIN
     Indication: PRODUCT USED FOR UNKNOWN INDICATION
     Route: 005
  4. BEVACIZUMAB. [Suspect]
     Active Substance: BEVACIZUMAB
     Indication: OVARIAN CANCER STAGE IV
     Dosage: 6 CYCLES
     Route: 065
  5. CARBOPLATIN. [Suspect]
     Active Substance: CARBOPLATIN
     Indication: OVARIAN CANCER STAGE IV
     Dosage: 6 CYCLES
     Route: 065
  6. PACLITAXEL. [Suspect]
     Active Substance: PACLITAXEL
     Indication: OVARIAN CANCER STAGE IV
     Dosage: 6 CYCLES
     Route: 065

REACTIONS (6)
  - Fatigue [Recovering/Resolving]
  - Malignant neoplasm progression [Unknown]
  - Neuropathy peripheral [Recovered/Resolved]
  - Ovarian cancer stage IV [Unknown]
  - Metastases to lung [Unknown]
  - Toxicity to various agents [Unknown]
